FAERS Safety Report 8458420-4 (Version None)
Quarter: 2012Q2

REPORT INFORMATION
  Report Type: 
  Country: None (occurrence: None)
  Receive Date: 20120622
  Receipt Date: 20120608
  Transmission Date: 20120825
  Serious: Yes (Congenital Anomaly)
  Sender: FDA-Public Use
  Company Number: DE-RANBAXY-2012RR-57255

PATIENT
  Sex: Male
  Weight: 0.5 kg

DRUGS (1)
  1. FLUOXETINE [Suspect]
     Dosage: 10 MG/DAY
     Route: 064

REACTIONS (1)
  - POTTER'S SYNDROME [None]
